FAERS Safety Report 15150445 (Version 1)
Quarter: 2018Q3

REPORT INFORMATION
  Report Type: Spontaneous
  Country: KR (occurrence: KR)
  Receive Date: 20180716
  Receipt Date: 20180716
  Transmission Date: 20181010
  Serious: Yes (Other)
  Sender: FDA-Public Use
  Company Number: KR-BAYER-2018-130253

PATIENT
  Age: 61 Year
  Sex: Female

DRUGS (1)
  1. BETAFERON [Suspect]
     Active Substance: INTERFERON BETA-1B
     Dosage: UNK

REACTIONS (7)
  - Muscular weakness [None]
  - Dysuria [None]
  - Multiple sclerosis [None]
  - Hyperreflexia [None]
  - Spinal ligament ossification [None]
  - Expanded disability status scale [None]
  - Hypoaesthesia [None]
